FAERS Safety Report 6955695-5 (Version None)
Quarter: 2010Q3

REPORT INFORMATION
  Report Type: 
  Country: None (occurrence: None)
  Receive Date: 20100826
  Receipt Date: 20100826
  Transmission Date: 20110219
  Serious: No
  Sender: FDA-Public Use
  Company Number: None

PATIENT
  Age: 70 Year
  Sex: Male
  Weight: 88.905 kg

DRUGS (2)
  1. PROTONIX [Suspect]
     Indication: GASTROOESOPHAGEAL REFLUX DISEASE
     Dosage: 40 MG. ONCE DAILY PO
     Route: 048
     Dates: start: 20100101, end: 20100301
  2. AXID [Suspect]
     Indication: GASTROOESOPHAGEAL REFLUX DISEASE
     Dosage: 40 MG. ONCE DAILY PO
     Route: 048
     Dates: start: 20100601, end: 20100616

REACTIONS (1)
  - ARRHYTHMIA [None]
